FAERS Safety Report 11637805 (Version 2)
Quarter: 2016Q1

REPORT INFORMATION
  Report Type: Report from Study
  Country: US (occurrence: US)
  Receive Date: 20151016
  Receipt Date: 20160127
  Transmission Date: 20160525
  Serious: No
  Sender: FDA-Public Use
  Company Number: US-AMGEN-USASL2015103099

PATIENT
  Age: 55 Year
  Sex: Female

DRUGS (1)
  1. ENBREL [Suspect]
     Active Substance: ETANERCEPT
     Indication: OSTEOARTHRITIS
     Dosage: UNK
     Route: 065
     Dates: start: 20150928

REACTIONS (2)
  - No therapeutic response [Unknown]
  - Osteoarthritis [Unknown]

NARRATIVE: CASE EVENT DATE: 2015
